FAERS Safety Report 23105176 (Version 1)
Quarter: 2023Q4

REPORT INFORMATION
  Report Type: Spontaneous
  Country: US (occurrence: US)
  Receive Date: 20231025
  Receipt Date: 20231025
  Transmission Date: 20240110
  Serious: Yes (Life-Threatening, Hospitalization)
  Sender: FDA-Public Use
  Company Number: US-STRIDES ARCOLAB LIMITED-2023SP015898

PATIENT
  Age: 85 Year
  Sex: Female

DRUGS (1)
  1. LISINOPRIL [Suspect]
     Active Substance: LISINOPRIL
     Indication: Hypertension
     Dosage: UNK
     Route: 065

REACTIONS (5)
  - Respiratory distress [Unknown]
  - Stridor [Unknown]
  - Small intestinal obstruction [Recovered/Resolved]
  - Intestinal angioedema [Recovered/Resolved]
  - Angioedema [Recovered/Resolved]
